FAERS Safety Report 8496462-3 (Version None)
Quarter: 2012Q2

REPORT INFORMATION
  Report Type: 
  Country: None (occurrence: None)
  Receive Date: 20120405
  Receipt Date: 20100127
  Transmission Date: 20120825
  Serious: Yes (Other)
  Sender: FDA-Public Use
  Company Number: PHHY2009US58375

PATIENT
  Age: 68 Year
  Sex: Female
  Weight: 103 kg

DRUGS (4)
  1. PRILOSEC [Concomitant]
  2. ALBUTEROL [Concomitant]
  3. CALCIUM WITH VITAMIN D (CALCIUM PHOSPHATE, CALCIUM SODIUM LACTATE, ERG [Concomitant]
  4. RECLAST [Suspect]
     Indication: OSTEOPOROSIS
     Dosage: 5 MG, UNK, INFUSION
     Dates: start: 20091117

REACTIONS (7)
  - BURNING SENSATION [None]
  - EYE IRRITATION [None]
  - IRITIS [None]
  - HEADACHE [None]
  - PARAESTHESIA [None]
  - FATIGUE [None]
  - OCULAR HYPERAEMIA [None]
